FAERS Safety Report 8786152 (Version 3)
Quarter: 2014Q1

REPORT INFORMATION
  Report Type: Spontaneous
  Country: US (occurrence: US)
  Receive Date: 20120914
  Receipt Date: 20140106
  Transmission Date: 20141002
  Serious: Yes (Death)
  Sender: FDA-Public Use
  Company Number: US-B.I. PHARMACEUTICALS,INC./RIDGEFIELD-2012-BP-22754BP

PATIENT
  Age: 82 Year
  Sex: Male
  Weight: 79.38 kg

DRUGS (5)
  1. PRADAXA [Suspect]
     Indication: ATRIAL FIBRILLATION
     Dosage: 150 MG
     Route: 048
     Dates: start: 20110128, end: 201104
  2. PRADAXA [Suspect]
     Route: 048
     Dates: start: 201104, end: 201109
  3. BACTRIM DS [Concomitant]
  4. NAMENDA [Concomitant]
  5. PRAVASTATIN [Concomitant]

REACTIONS (2)
  - Haemorrhagic stroke [Fatal]
  - Cerebral haemorrhage [Fatal]
